FAERS Safety Report 16070445 (Version 3)
Quarter: 2019Q2

REPORT INFORMATION
  Report Type: Spontaneous
  Country: DE (occurrence: DE)
  Receive Date: 20190314
  Receipt Date: 20190501
  Transmission Date: 20190711
  Serious: Yes (Disabling, Other)
  Sender: FDA-Public Use
  Company Number: DE-SA-2019SA063964

PATIENT
  Age: 39 Year
  Sex: Female
  Weight: 93 kg

DRUGS (14)
  1. IBUPROFEN. [Concomitant]
     Active Substance: IBUPROFEN
     Dosage: UNK UNK, PRN
  2. TEBONIN INTENS [Concomitant]
     Active Substance: GINKGO
     Indication: MEMORY IMPAIRMENT
     Dosage: 120 MG, BID
     Route: 048
     Dates: start: 2015
  3. NUROFEN (P) [Concomitant]
     Active Substance: IBUPROFEN
     Dosage: UNK UNK, PRN
  4. VITAMIN B12 [Concomitant]
     Active Substance: CYANOCOBALAMIN
     Indication: VITAMIN SUPPLEMENTATION
     Dosage: 1000 UG, QD
     Route: 048
     Dates: start: 2015
  5. LEMTRADA [Suspect]
     Active Substance: ALEMTUZUMAB
     Dosage: 12 MG, QD
     Route: 041
     Dates: start: 20170822, end: 20170824
  6. L-THYROXINE [LEVOTHYROXINE SODIUM] [Concomitant]
     Active Substance: LEVOTHYROXINE SODIUM
     Indication: HYPOTHYROIDISM
     Dosage: 112 UG, QD
     Route: 048
     Dates: start: 2015
  7. BIOTIN [Concomitant]
     Active Substance: BIOTIN
     Dosage: UNK UNK, UNK
  8. ZINC OROTATE [Concomitant]
     Active Substance: ZINC OROTATE
     Dosage: UNK UNK, UNK
  9. MONOPROST [Concomitant]
     Active Substance: LATANOPROST
     Dosage: UNK UNK, TIW
     Route: 047
  10. LEMTRADA [Suspect]
     Active Substance: ALEMTUZUMAB
     Indication: MULTIPLE SCLEROSIS
     Dosage: 12 MG, QD
     Route: 041
     Dates: start: 20160815, end: 20160819
  11. L-THYROXINE [LEVOTHYROXINE SODIUM] [Concomitant]
     Active Substance: LEVOTHYROXINE SODIUM
     Dosage: 75 UG, UNK
     Route: 048
  12. BACLOFEN. [Concomitant]
     Active Substance: BACLOFEN
     Indication: MUSCLE SPASTICITY
     Dosage: 10 MG, FREQUENCY: 0 - 1/2 - 0; IF REQUIRED, ANOTHER 1/2 TABLET
     Route: 048
     Dates: start: 201704
  13. VIGANTOLETTEN [Concomitant]
     Active Substance: CHOLECALCIFEROL
     Indication: PROPHYLAXIS
     Dosage: 1000 IU, QD
     Route: 048
     Dates: start: 2015
  14. VITAMIN B1 [Concomitant]
     Active Substance: THIAMINE HYDROCHLORIDE
     Dosage: UNK UNK, UNK

REACTIONS (25)
  - Haematoma [Unknown]
  - Contusion [Unknown]
  - pH urine decreased [Unknown]
  - Urinary sediment present [Unknown]
  - Paraesthesia [Unknown]
  - Gingival bleeding [Unknown]
  - Anti-thyroid antibody positive [Unknown]
  - Mean cell volume decreased [Unknown]
  - Lymphocyte count decreased [Unknown]
  - C-reactive protein increased [Unknown]
  - Gamma-glutamyltransferase increased [Unknown]
  - Immune thrombocytopenic purpura [Not Recovered/Not Resolved]
  - Exophthalmos [Unknown]
  - Autoimmune thyroiditis [Unknown]
  - Gait disturbance [Unknown]
  - Eosinophil percentage increased [Unknown]
  - Platelet count decreased [Recovering/Resolving]
  - Hypothyroidism [Unknown]
  - Muscle spasticity [Unknown]
  - Blood bilirubin increased [Unknown]
  - Red blood cells urine positive [Unknown]
  - Petechiae [Unknown]
  - Temperature intolerance [Unknown]
  - Lymphocyte percentage decreased [Unknown]
  - Muscle strain [Unknown]

NARRATIVE: CASE EVENT DATE: 2018
